FAERS Safety Report 14026121 (Version 3)
Quarter: 2018Q2

REPORT INFORMATION
  Report Type: Report from Study
  Country: JP (occurrence: JP)
  Receive Date: 20170929
  Receipt Date: 20180413
  Transmission Date: 20180711
  Serious: Yes (Death, Other)
  Sender: FDA-Public Use
  Company Number: PHJP2017JP029695

PATIENT
  Age: 57 Year
  Sex: Female

DRUGS (4)
  1. ZYKADIA [Suspect]
     Active Substance: CERITINIB
     Dosage: 600 MG, QD
     Route: 048
     Dates: start: 20170328, end: 20170420
  2. ZYKADIA [Suspect]
     Active Substance: CERITINIB
     Dosage: 750 MG, QD
     Route: 048
     Dates: start: 20170911
  3. ZYKADIA [Suspect]
     Active Substance: CERITINIB
     Indication: NON-SMALL CELL LUNG CANCER STAGE IV
     Dosage: 750 MG, QD
     Route: 048
     Dates: start: 20170207, end: 20170317
  4. ZYKADIA [Suspect]
     Active Substance: CERITINIB
     Dosage: 450 MG, QD
     Route: 048
     Dates: start: 20170501, end: 20170810

REACTIONS (10)
  - Non-small cell lung cancer stage IV [Fatal]
  - Pyrexia [Unknown]
  - Alanine aminotransferase increased [Unknown]
  - Liver disorder [Not Recovered/Not Resolved]
  - Malignant neoplasm progression [Unknown]
  - Renal impairment [Not Recovered/Not Resolved]
  - Cystitis [Recovered/Resolved]
  - Malignant neoplasm progression [Fatal]
  - Metastases to central nervous system [Unknown]
  - Aspartate aminotransferase increased [Unknown]

NARRATIVE: CASE EVENT DATE: 20170302
